FAERS Safety Report 11184124 (Version 4)
Quarter: 2015Q3

REPORT INFORMATION
  Report Type: Spontaneous
  Country: CH (occurrence: CH)
  Receive Date: 20150612
  Receipt Date: 20150824
  Transmission Date: 20151125
  Serious: Yes (Hospitalization)
  Sender: FDA-Public Use
  Company Number: CH-MALLINCKRODT-T201502879

PATIENT
  Age: 56 Year
  Sex: Female
  Weight: 50 kg

DRUGS (6)
  1. MEFENAMIC-ACID [Concomitant]
     Active Substance: MEFENAMIC ACID
     Dosage: 500 MG, QID
     Route: 065
     Dates: start: 201412
  2. INDIUM CHLORIDE IN-111 [Suspect]
     Active Substance: INDIUM IN-111 CHLORIDE
     Indication: RADIOISOTOPE SCAN
     Dosage: 184 MBQ, SINGLE
     Route: 042
     Dates: start: 20150529, end: 20150529
  3. ZEVALIN [Suspect]
     Active Substance: IBRITUMOMAB TIUXETAN
     Indication: RADIOISOTOPE SCAN
     Dosage: UNK UNK, SINGLE
     Route: 042
     Dates: start: 20150529, end: 20150529
  4. ALLOPURINOL. [Concomitant]
     Active Substance: ALLOPURINOL
     Indication: TUMOUR LYSIS SYNDROME
     Dosage: 300 MG, UNK
     Route: 048
     Dates: start: 20150529, end: 20150601
  5. BACTRIM [Concomitant]
     Active Substance: SULFAMETHOXAZOLE\TRIMETHOPRIM
     Indication: INFECTION PROPHYLAXIS
     Dosage: 3 TIMES WEEKLY
     Route: 048
     Dates: start: 20150520
  6. DAFALGAN [Concomitant]
     Active Substance: ACETAMINOPHEN
     Dosage: 1 G, QID
     Route: 048
     Dates: start: 20150520

REACTIONS (3)
  - Cancer pain [Recovering/Resolving]
  - Inflammation [Unknown]
  - Oedema peripheral [Unknown]

NARRATIVE: CASE EVENT DATE: 201505
